FAERS Safety Report 18021153 (Version 5)
Quarter: 2022Q3

REPORT INFORMATION
  Report Type: Report from Study
  Country: MY (occurrence: MY)
  Receive Date: 20200714
  Receipt Date: 20220905
  Transmission Date: 20221027
  Serious: Yes (Hospitalization)
  Sender: FDA-Public Use
  Company Number: None

PATIENT
  Age: 73 Year
  Sex: Male
  Weight: 80.5 kg

DRUGS (5)
  1. PEMETREXED DISODIUM [Suspect]
     Active Substance: PEMETREXED DISODIUM
     Indication: Non-small cell lung cancer
     Dosage: 970 MG
     Route: 042
     Dates: start: 20191231, end: 20200429
  2. PEMBROLIZUMAB [Suspect]
     Active Substance: PEMBROLIZUMAB
     Indication: Non-small cell lung cancer
     Dosage: 200 MG, Q3W
     Route: 042
     Dates: start: 20191231, end: 20200429
  3. PLACEBO [Suspect]
     Active Substance: UNSPECIFIED INGREDIENT
     Indication: Non-small cell lung cancer
     Dosage: UNK
     Route: 058
     Dates: start: 20191231, end: 20200429
  4. FLAVETTES [Concomitant]
     Indication: Supplementation therapy
     Dosage: UNK
     Route: 065
     Dates: start: 20191226
  5. EXPECTORANT [Concomitant]
     Active Substance: GUAIFENESIN
     Indication: Cough
     Dosage: UNK
     Route: 065
     Dates: start: 20200217

REACTIONS (1)
  - Pneumonitis [Not Recovered/Not Resolved]

NARRATIVE: CASE EVENT DATE: 20200515
